FAERS Safety Report 7069078 (Version 2)
Quarter: 2014Q3

REPORT INFORMATION
  Report Type: Spontaneous
  Country: US (occurrence: None)
  Receive Date: 20090724
  Receipt Date: 20140909
  Transmission Date: 20150326
  Serious: Yes (Other)
  Sender: FDA-Public Use
  Company Number: 2009S1005508

PATIENT
  Age: 56 Year
  Sex: Male
  Weight: 112 kg

DRUGS (8)
  1. PHOSPHO-SODA [Suspect]
     Active Substance: SODIUM PHOSPHATE, DIBASIC\SODIUM PHOSPHATE, MONOBASIC
     Indication: COLONOSCOPY
     Route: 048
     Dates: start: 20060913, end: 20060913
  2. DULCOLAX [Suspect]
     Active Substance: BISACODYL OR DOCUSATE SODIUM
     Indication: COLONOSCOPY
     Dates: start: 20060913, end: 20060913
  3. HYDROCHLOROTHIAZIDE. [Concomitant]
     Active Substance: HYDROCHLOROTHIAZIDE
  4. FLEET [Suspect]
     Active Substance: BISACODYL\GLYCERIN\MINERAL OIL\SODIUM PHOSPHATE, DIBASIC\SODIUM PHOSPHATE, MONOBASIC
     Indication: COLONOSCOPY
     Dates: start: 20060914, end: 20060914
  5. LIPITOR [Concomitant]
     Active Substance: ATORVASTATIN CALCIUM
  6. NAPROSYN [Concomitant]
     Active Substance: NAPROXEN
  7. ZESTRIL [Concomitant]
     Active Substance: LISINOPRIL
  8. TOPROL XL [Concomitant]
     Active Substance: METOPROLOL SUCCINATE

REACTIONS (9)
  - Decreased appetite [None]
  - Dehydration [None]
  - Muscle spasms [None]
  - Renal impairment [None]
  - Renal failure [None]
  - Fatigue [None]
  - Malaise [None]
  - Blood pressure decreased [None]
  - Nausea [None]

NARRATIVE: CASE EVENT DATE: 20061106
